FAERS Safety Report 6507101-2 (Version None)
Quarter: 2009Q4

REPORT INFORMATION
  Report Type: 
  Country: None (occurrence: None)
  Receive Date: 20091221
  Receipt Date: 20091209
  Transmission Date: 20100525
  Serious: Yes (Other)
  Sender: FDA-Public Use
  Company Number: PHHY2009MX54874

PATIENT
  Age: 60 Year
  Sex: Female

DRUGS (2)
  1. DIOVAN [Suspect]
     Indication: HYPERTENSION
     Dosage: 320 MG/DAY
     Route: 048
     Dates: start: 20090401, end: 20091201
  2. EPOGEN [Concomitant]
     Dosage: 2 TIMES A WEEK

REACTIONS (4)
  - DIARRHOEA [None]
  - GASTRIC INFECTION [None]
  - HAEMATEMESIS [None]
  - HYPOTENSION [None]
